FAERS Safety Report 7429222-2 (Version None)
Quarter: 2011Q2

REPORT INFORMATION
  Report Type: 
  Country: None (occurrence: None)
  Receive Date: 20110421
  Receipt Date: 20110413
  Transmission Date: 20111010
  Serious: Yes (Disabling)
  Sender: FDA-Public Use
  Company Number: GB-BAXTER-2011BH005656

PATIENT
  Age: 55 Year
  Sex: Female
  Weight: 70 kg

DRUGS (25)
  1. SODIUM CHLORIDE 0.9% IN PLASTIC CONTAINER [Suspect]
     Route: 042
     Dates: start: 20101216, end: 20101216
  2. PACLITAXEL [Suspect]
     Route: 042
     Dates: start: 20101216, end: 20101216
  3. SODIUM CHLORIDE 0.9% IN PLASTIC CONTAINER [Suspect]
     Route: 042
     Dates: start: 20101125, end: 20101125
  4. PACLITAXEL [Suspect]
     Route: 042
     Dates: start: 20101115, end: 20101115
  5. PACLITAXEL [Suspect]
     Route: 042
     Dates: start: 20101202, end: 20101202
  6. PACLITAXEL [Suspect]
     Route: 042
     Dates: start: 20101230, end: 20101230
  7. SODIUM CHLORIDE 0.9% IN PLASTIC CONTAINER [Suspect]
     Indication: BREAST CANCER
     Route: 042
     Dates: start: 20101104, end: 20101104
  8. PACLITAXEL [Suspect]
     Route: 042
     Dates: start: 20101111, end: 20101111
  9. PACLITAXEL [Suspect]
     Route: 042
     Dates: start: 20101209, end: 20101209
  10. DEXAMETHASONE [Suspect]
     Indication: PRODUCT USED FOR UNKNOWN INDICATION
     Route: 042
     Dates: start: 20101104
  11. SODIUM CHLORIDE 0.9% IN PLASTIC CONTAINER [Suspect]
     Route: 042
     Dates: start: 20101115, end: 20101115
  12. SODIUM CHLORIDE 0.9% IN PLASTIC CONTAINER [Suspect]
     Route: 042
     Dates: start: 20101223, end: 20101223
  13. PACLITAXEL [Suspect]
     Route: 042
     Dates: start: 20101125, end: 20101125
  14. CHLORPHENAMINE [Suspect]
     Indication: PRODUCT USED FOR UNKNOWN INDICATION
     Route: 042
     Dates: start: 20101104
  15. SODIUM CHLORIDE 0.9% IN PLASTIC CONTAINER [Suspect]
     Route: 042
     Dates: start: 20101111, end: 20101111
  16. SODIUM CHLORIDE 0.9% IN PLASTIC CONTAINER [Suspect]
     Route: 042
     Dates: start: 20101202, end: 20101202
  17. SODIUM CHLORIDE 0.9% IN PLASTIC CONTAINER [Suspect]
     Route: 042
     Dates: start: 20101209, end: 20101209
  18. SODIUM CHLORIDE 0.9% IN PLASTIC CONTAINER [Suspect]
     Route: 042
     Dates: start: 20110106, end: 20110106
  19. SODIUM CHLORIDE 0.9% IN PLASTIC CONTAINER [Suspect]
     Indication: PRODUCT USED FOR UNKNOWN INDICATION
     Route: 042
     Dates: start: 20101104
  20. PACLITAXEL [Suspect]
     Route: 042
     Dates: start: 20110106, end: 20110106
  21. SODIUM CHLORIDE 0.9% IN PLASTIC CONTAINER [Suspect]
     Route: 042
     Dates: start: 20101230, end: 20101230
  22. PACLITAXEL [Suspect]
     Indication: BREAST CANCER
     Route: 042
     Dates: start: 20101104, end: 20101104
  23. PACLITAXEL [Suspect]
     Route: 042
     Dates: start: 20101223, end: 20101223
  24. ALOXI [Suspect]
     Indication: PRODUCT USED FOR UNKNOWN INDICATION
     Route: 042
     Dates: start: 20101104
  25. RANITIDINE [Suspect]
     Indication: PRODUCT USED FOR UNKNOWN INDICATION
     Route: 042
     Dates: start: 20101104

REACTIONS (1)
  - NEUROPATHY PERIPHERAL [None]
